FAERS Safety Report 10442218 (Version 4)
Quarter: 2014Q4

REPORT INFORMATION
  Report Type: Spontaneous
  Country: US (occurrence: US)
  Receive Date: 20140909
  Receipt Date: 20141113
  Transmission Date: 20150528
  Serious: Yes (Other)
  Sender: FDA-Public Use
  Company Number: PHHY2014US078330

PATIENT
  Sex: Male

DRUGS (20)
  1. FENOFIBRATE. [Suspect]
     Active Substance: FENOFIBRATE
     Indication: PRODUCT USED FOR UNKNOWN INDICATION
     Dosage: 145 MG EVERY DAY
     Route: 065
  2. VITAMIN D [Suspect]
     Active Substance: CHOLECALCIFEROL
     Indication: PRODUCT USED FOR UNKNOWN INDICATION
     Dosage: UNK UKN, UNK
     Route: 065
  3. BACLOFEN INTRATHECAL [Suspect]
     Active Substance: BACLOFEN
     Indication: INTERVERTEBRAL DISC DEGENERATION
     Dosage: 59.18MCG/DAY
     Route: 039
  4. BACLOFEN INTRATHECAL [Suspect]
     Active Substance: BACLOFEN
     Dosage: 59.2 UG (PER DAY)
     Route: 037
  5. METFORMIN [Suspect]
     Active Substance: METFORMIN HYDROCHLORIDE
     Indication: PRODUCT USED FOR UNKNOWN INDICATION
     Dosage: 500 MG, MORNING
     Route: 065
  6. MORPHINE [Suspect]
     Active Substance: MORPHINE
     Dosage: 2.219MG/DAY
     Route: 037
  7. ROXICET [Suspect]
     Active Substance: ACETAMINOPHEN\OXYCODONE HYDROCHLORIDE
     Indication: PRODUCT USED FOR UNKNOWN INDICATION
     Dosage: 5/325MG EVERY DAY AS NEEDED
     Route: 065
  8. BUPIVACAINE [Suspect]
     Active Substance: BUPIVACAINE
     Dosage: 2.96 MG (PER DAY)
     Route: 037
  9. PROVIGIL [Suspect]
     Active Substance: MODAFINIL
     Indication: PRODUCT USED FOR UNKNOWN INDICATION
     Dosage: 0.5 DF, BID
     Route: 065
  10. LANTUS [Suspect]
     Active Substance: INSULIN GLARGINE
     Indication: PRODUCT USED FOR UNKNOWN INDICATION
     Dosage: 30 UNITS SUBCUTANEOUS EVERY NIGHT AT BEDTIME
     Route: 058
  11. CALCIUM [Suspect]
     Active Substance: CALCIUM
     Indication: PRODUCT USED FOR UNKNOWN INDICATION
     Dosage: UNK UKN, UNK
     Route: 065
  12. BUPIVACAINE [Suspect]
     Active Substance: BUPIVACAINE
     Dosage: 0.220 MG, UNK
     Route: 037
  13. MORPHINE [Suspect]
     Active Substance: MORPHINE
     Indication: PRODUCT USED FOR UNKNOWN INDICATION
     Dosage: 2.219MG/DAY
     Route: 037
  14. BUPIVACAINE [Suspect]
     Active Substance: BUPIVACAINE
     Indication: INTERVERTEBRAL DISC DEGENERATION
     Dosage: 2.959MG/DAY
     Route: 037
  15. MORPHINE [Suspect]
     Active Substance: MORPHINE
     Dosage: 0.294 MG, UNK
     Route: 037
  16. FLORASTOR [Suspect]
     Active Substance: SACCHAROMYCES CEREVISIAE
     Indication: PRODUCT USED FOR UNKNOWN INDICATION
     Dosage: 250 MG TWICE PER DAY
     Route: 065
  17. BACLOFEN INTRATHECAL [Suspect]
     Active Substance: BACLOFEN
     Dosage: 5.88 UG, UNK
     Route: 037
  18. LYRICA [Suspect]
     Active Substance: PREGABALIN
     Indication: PRODUCT USED FOR UNKNOWN INDICATION
     Dosage: 100 MG TWICE PER DAY
     Route: 065
  19. CYMBALTA [Suspect]
     Active Substance: DULOXETINE HYDROCHLORIDE
     Indication: DEPRESSION
     Dosage: 60MG EVERY DAY
     Route: 065
  20. VICTOZA [Suspect]
     Active Substance: LIRAGLUTIDE
     Indication: PRODUCT USED FOR UNKNOWN INDICATION
     Dosage: 0.6 MG, UNK
     Route: 058

REACTIONS (25)
  - Libido decreased [Unknown]
  - Hypoacusis [Unknown]
  - Depression [Recovering/Resolving]
  - Fatigue [Unknown]
  - Memory impairment [Unknown]
  - Scab [Unknown]
  - Dizziness [Unknown]
  - Arthralgia [Unknown]
  - Weight increased [Unknown]
  - Formication [Unknown]
  - Unevaluable event [Unknown]
  - Back pain [Unknown]
  - Irritability [Unknown]
  - Paraesthesia [Unknown]
  - Pallor [Unknown]
  - Hypoaesthesia [Unknown]
  - Discomfort [Unknown]
  - Nausea [Unknown]
  - Hyperhidrosis [Unknown]
  - Drug withdrawal syndrome [Unknown]
  - Balance disorder [Unknown]
  - Anxiety [Unknown]
  - Performance status decreased [Unknown]
  - Cold sweat [Unknown]
  - Asthenia [Unknown]
